FAERS Safety Report 16288500 (Version 2)
Quarter: 2019Q3

REPORT INFORMATION
  Report Type: Report from Study
  Country: None (occurrence: US)
  Receive Date: 20190509
  Receipt Date: 20190819
  Transmission Date: 20191004
  Serious: No
  Sender: FDA-Public Use
  Company Number: US-ABBVIE-19K-163-2770705-00

PATIENT
  Sex: Female
  Weight: 101.24 kg

DRUGS (1)
  1. HUMIRA [Suspect]
     Active Substance: ADALIMUMAB
     Indication: HIDRADENITIS
     Route: 058
     Dates: start: 2018

REACTIONS (5)
  - Poor quality sleep [Unknown]
  - Paraesthesia [Unknown]
  - Pruritus [Unknown]
  - Hidradenitis [Not Recovered/Not Resolved]
  - Pain in extremity [Unknown]
